FAERS Safety Report 11105973 (Version 1)
Quarter: 2015Q2

REPORT INFORMATION
  Report Type: Spontaneous
  Country: DE (occurrence: DE)
  Receive Date: 20150512
  Receipt Date: 20150512
  Transmission Date: 20150821
  Serious: Yes (Death, Other)
  Sender: FDA-Public Use
  Company Number: DE-CIPLA LTD.-2015DE03728

PATIENT

DRUGS (9)
  1. HORMONAL CONTRACEPTIVES [Suspect]
     Active Substance: UNSPECIFIED INGREDIENT
     Route: 064
  2. BUDESONIDE. [Suspect]
     Active Substance: BUDESONIDE
     Route: 064
  3. DIMEMHYDRINATE [Suspect]
     Active Substance: DIMENHYDRINATE
     Route: 064
  4. METOPROLOL [Suspect]
     Active Substance: METOPROLOL
     Route: 064
  5. PAROXERINE [Suspect]
     Active Substance: PAROXETINE HYDROCHLORIDE
     Route: 064
  6. VENLAFAXINE [Suspect]
     Active Substance: VENLAFAXINE HYDROCHLORIDE
     Dosage: UNK
     Route: 064
  7. CITALOPRAM [Suspect]
     Active Substance: CITALOPRAM HYDROBROMIDE
     Route: 064
  8. CETIRIZINE [Suspect]
     Active Substance: CETIRIZINE HYDROCHLORIDE
     Route: 064
  9. PREDNISOLONE. [Suspect]
     Active Substance: PREDNISOLONE
     Route: 064

REACTIONS (4)
  - Vanishing twin syndrome [None]
  - Maternal drugs affecting foetus [None]
  - Stillbirth [Fatal]
  - Foetal exposure during pregnancy [Unknown]
